FAERS Safety Report 23790803 (Version 1)
Quarter: 2024Q2

REPORT INFORMATION
  Report Type: Spontaneous
  Country: US (occurrence: US)
  Receive Date: 20240427
  Receipt Date: 20240427
  Transmission Date: 20240716
  Serious: Yes (Hospitalization)
  Sender: FDA-Public Use
  Company Number: US-BAYER-2024A059021

PATIENT
  Age: 64 Year
  Sex: Male

DRUGS (18)
  1. ADEMPAS [Suspect]
     Active Substance: RIOCIGUAT
     Indication: Pulmonary hypertension
     Dosage: 0.5 MG, TID
     Dates: start: 20231103, end: 20240329
  2. ADEMPAS [Suspect]
     Active Substance: RIOCIGUAT
     Indication: Lung hyperinflation
  3. OPSUMIT [Concomitant]
     Active Substance: MACITENTAN
     Indication: Pulmonary hypertension
     Dosage: UNK
  4. OPSUMIT [Concomitant]
     Active Substance: MACITENTAN
     Indication: Lung hyperinflation
  5. SELEXIPAG [Concomitant]
     Active Substance: SELEXIPAG
     Indication: Pulmonary hypertension
     Dosage: UNK
  6. SELEXIPAG [Concomitant]
     Active Substance: SELEXIPAG
     Indication: Lung hyperinflation
  7. TRAZODONE [Concomitant]
     Active Substance: TRAZODONE HYDROCHLORIDE
  8. ATORVASTATIN [Concomitant]
     Active Substance: ATORVASTATIN
  9. METOLAZONE [Concomitant]
     Active Substance: METOLAZONE
  10. POTASSIUM CHLORIDE [Concomitant]
     Active Substance: POTASSIUM CHLORIDE
  11. TORSEMIDE [Concomitant]
     Active Substance: TORSEMIDE
  12. WARFARIN [Concomitant]
     Active Substance: WARFARIN
  13. ALLOPURINOL [Concomitant]
     Active Substance: ALLOPURINOL
  14. ACETAMINOPHEN [Concomitant]
     Active Substance: ACETAMINOPHEN
  15. OMEPRAZOLE [Concomitant]
     Active Substance: OMEPRAZOLE
  16. CYCLOBENZAPRINE [Concomitant]
     Active Substance: CYCLOBENZAPRINE
  17. JARDIANCE [Concomitant]
     Active Substance: EMPAGLIFLOZIN
  18. MAGOX [Concomitant]

REACTIONS (1)
  - Hypotension [None]

NARRATIVE: CASE EVENT DATE: 20240327
